FAERS Safety Report 25050783 (Version 2)
Quarter: 2025Q1

REPORT INFORMATION
  Report Type: Spontaneous
  Country: JP (occurrence: JP)
  Receive Date: 20250307
  Receipt Date: 20250320
  Transmission Date: 20250408
  Serious: Yes (Death, Other)
  Sender: SANDOZ
  Company Number: JP-asahikaseip-2025-AER-01246

PATIENT
  Age: 92 Year
  Sex: Male

DRUGS (1)
  1. RECLAST [Suspect]
     Active Substance: ZOLEDRONIC ACID
     Indication: Product used for unknown indication
     Dosage: 5 MG, QD
     Route: 041
     Dates: start: 202411, end: 202411

REACTIONS (6)
  - Pneumonia aspiration [Fatal]
  - Acute phase reaction [Recovered/Resolved]
  - General physical health deterioration [Unknown]
  - Coronavirus infection [Unknown]
  - Dementia [Unknown]
  - Fall [Unknown]

NARRATIVE: CASE EVENT DATE: 20241101
